FAERS Safety Report 7536889-7 (Version None)
Quarter: 2011Q2

REPORT INFORMATION
  Report Type: 
  Country: None (occurrence: None)
  Receive Date: 20110609
  Receipt Date: 20110527
  Transmission Date: 20111010
  Serious: Yes (Hospitalization, Other)
  Sender: FDA-Public Use
  Company Number: JP-ELI_LILLY_AND_COMPANY-JP201105003686

PATIENT
  Sex: Male

DRUGS (2)
  1. HUMALOG [Suspect]
     Dosage: 10 IU, QD
     Route: 058
  2. LANTUS [Concomitant]
     Dosage: 10 IU, QD
     Route: 065

REACTIONS (3)
  - DECREASED APPETITE [None]
  - BLOOD GLUCOSE INCREASED [None]
  - HYPOGLYCAEMIA [None]
